FAERS Safety Report 4399242-3 (Version None)
Quarter: 2004Q2

REPORT INFORMATION
  Report Type: 
  Country: None (occurrence: None)
  Receive Date: 20040621
  Receipt Date: 20031223
  Transmission Date: 20050107
  Serious: Yes (Other)
  Sender: FDA-Public Use
  Company Number: USA-2003-0008912

PATIENT
  Age: 49 Year
  Sex: Male
  Weight: 105.2 kg

DRUGS (11)
  1. OXYCONTIN [Suspect]
     Indication: PAIN
     Dosage: 20 MG, 5/DAY, ORAL
     Route: 048
  2. ATIVAN [Concomitant]
  3. PAXIL [Concomitant]
  4. PRILOSEC [Concomitant]
  5. INSULIN [Concomitant]
  6. ATENOLOL [Concomitant]
  7. PRINIVIL [Concomitant]
  8. AVANDIA [Concomitant]
  9. ISOSORBIDE [Concomitant]
  10. CELEXA [Concomitant]
  11. MULTI-VITAMINS [Concomitant]

REACTIONS (22)
  - ANXIETY [None]
  - ASTHENIA [None]
  - BLOOD GLUCOSE FLUCTUATION [None]
  - CHEST PAIN [None]
  - CONFUSIONAL STATE [None]
  - DEPRESSION [None]
  - DRUG DEPENDENCE [None]
  - DRUG INEFFECTIVE [None]
  - DRUG TOLERANCE [None]
  - DRUG WITHDRAWAL SYNDROME [None]
  - DYSPNOEA [None]
  - ERECTILE DYSFUNCTION [None]
  - FATIGUE [None]
  - HEADACHE [None]
  - INSOMNIA [None]
  - IRRITABILITY [None]
  - NERVOUSNESS [None]
  - PAIN [None]
  - ROAD TRAFFIC ACCIDENT [None]
  - TEARFULNESS [None]
  - TREMOR [None]
  - WEIGHT DECREASED [None]
